FAERS Safety Report 12492643 (Version 4)
Quarter: 2016Q3

REPORT INFORMATION
  Report Type: Spontaneous
  Country: JP (occurrence: JP)
  Receive Date: 20160623
  Receipt Date: 20160715
  Transmission Date: 20161109
  Serious: Yes (Other)
  Sender: FDA-Public Use
  Company Number: JP-009507513-1606JPN008804

PATIENT
  Age: 70 Year
  Sex: Female
  Weight: 37 kg

DRUGS (1)
  1. FOSAMAC TABLETS-5 [Suspect]
     Active Substance: ALENDRONATE SODIUM
     Indication: OSTEOPOROSIS
     Dosage: DAILY DOSAGE UNKNOWN
     Route: 048
     Dates: end: 201506

REACTIONS (3)
  - Osteonecrosis of jaw [Not Recovered/Not Resolved]
  - Jaw cyst [Unknown]
  - Sinusitis [Unknown]

NARRATIVE: CASE EVENT DATE: 201001
